FAERS Safety Report 5520493-6 (Version None)
Quarter: 2007Q4

REPORT INFORMATION
  Report Type: 
  Country: None (occurrence: None)
  Receive Date: 20071119
  Receipt Date: 20071109
  Transmission Date: 20080405
  Serious: Yes (Hospitalization)
  Sender: FDA-Public Use
  Company Number: HQWYE831611MAY04

PATIENT
  Sex: Female
  Weight: 93.98 kg

DRUGS (1)
  1. PREMPRO [Suspect]
     Indication: HORMONE REPLACEMENT THERAPY
     Dosage: UNKNOWN
     Route: 048
     Dates: start: 19970701, end: 20020703

REACTIONS (3)
  - ATRIAL FIBRILLATION [None]
  - DEEP VEIN THROMBOSIS [None]
  - PULMONARY EMBOLISM [None]
